FAERS Safety Report 18827010 (Version 1)
Quarter: 2021Q1

REPORT INFORMATION
  Report Type: Spontaneous
  Country: DE (occurrence: DE)
  Receive Date: 20210202
  Receipt Date: 20210202
  Transmission Date: 20210419
  Serious: Yes (Death, Other)
  Sender: FDA-Public Use
  Company Number: DE-009507513-2012DEU004233

PATIENT
  Age: 24 Year
  Sex: Male
  Weight: 115 kg

DRUGS (8)
  1. TEMODAL [Suspect]
     Active Substance: TEMOZOLOMIDE
     Dosage: 5 MILLIGRAM
     Route: 048
     Dates: start: 20200228, end: 20200307
  2. TEMODAL [Suspect]
     Active Substance: TEMOZOLOMIDE
     Indication: NEOPLASM MALIGNANT
     Dosage: 140 MILLIGRAM
     Route: 048
     Dates: start: 20200228, end: 20200307
  3. DEXAMETHASONE. [Concomitant]
     Active Substance: DEXAMETHASONE
     Dosage: 8 MILLIGRAM
  4. DACARBAZINE. [Concomitant]
     Active Substance: DACARBAZINE
     Indication: NEOPLASM MALIGNANT
     Dosage: 774 MILLIGRAM
     Dates: end: 20200307
  5. IRINOTECAN [Concomitant]
     Active Substance: IRINOTECAN
     Indication: NEOPLASM MALIGNANT
     Dosage: 372 MILLIGRAM
     Dates: start: 20200218, end: 20200307
  6. VINCRISTINE [Concomitant]
     Active Substance: VINCRISTINE
     Indication: NEOPLASM MALIGNANT
     Dosage: 2 MILLIGRAM
     Dates: start: 20200218, end: 20200307
  7. ONDANSETRON [Concomitant]
     Active Substance: ONDANSETRON
     Dosage: 8 MILLIGRAM
  8. EMEND [Concomitant]
     Active Substance: APREPITANT
     Dosage: UNK

REACTIONS (3)
  - Multiple organ dysfunction syndrome [Fatal]
  - Malignant neoplasm progression [Fatal]
  - Product use in unapproved indication [Unknown]

NARRATIVE: CASE EVENT DATE: 20200307
